FAERS Safety Report 7291503-3 (Version None)
Quarter: 2011Q1

REPORT INFORMATION
  Report Type: 
  Country: None (occurrence: None)
  Receive Date: 20110214
  Receipt Date: 20110209
  Transmission Date: 20110831
  Serious: No
  Sender: FDA-Public Use
  Company Number: US-TEVA-266695USA

PATIENT
  Sex: Female

DRUGS (1)
  1. COPAXONE [Suspect]
     Route: 058

REACTIONS (5)
  - PRURITUS [None]
  - INJECTION SITE REACTION [None]
  - ERYTHEMA [None]
  - SWELLING [None]
  - ANXIETY [None]
